FAERS Safety Report 4441048-0 (Version None)
Quarter: 2004Q3

REPORT INFORMATION
  Report Type: 
  Country: None (occurrence: None)
  Receive Date: 20040902
  Receipt Date: 20040902
  Transmission Date: 20050211
  Serious: Yes (Hospitalization)
  Sender: FDA-Public Use
  Company Number: None

PATIENT
  Age: 52 Year
  Sex: Female
  Weight: 80.2 kg

DRUGS (5)
  1. IRINOTECAN [Suspect]
     Indication: OVARIAN CANCER
     Dosage: 100 MG/M2; 1DOSE; IV
     Route: 042
     Dates: start: 20040805, end: 20040805
  2. CAPECITABINE [Suspect]
     Indication: OVARIAN CANCER
     Dosage: 2000 MG/M2; 9 DOSES; ORAL
     Route: 048
     Dates: start: 20040806, end: 20040810
  3. COUMADIN [Concomitant]
  4. LIPITOR [Concomitant]
  5. HYDROCODONE [Concomitant]

REACTIONS (10)
  - ATELECTASIS [None]
  - BRONCHOSPASM [None]
  - CHEST PAIN [None]
  - CHEST X-RAY ABNORMAL [None]
  - DYSPNOEA [None]
  - HYDROPNEUMOTHORAX [None]
  - PAIN [None]
  - PLEURAL EFFUSION [None]
  - RESPIRATORY ACIDOSIS [None]
  - RESPIRATORY DISTRESS [None]
